FAERS Safety Report 5510377-1 (Version None)
Quarter: 2007Q4

REPORT INFORMATION
  Report Type: 
  Country: None (occurrence: None)
  Receive Date: 20071108
  Receipt Date: 20051201
  Transmission Date: 20080405
  Serious: Yes (Hospitalization)
  Sender: FDA-Public Use
  Company Number: US-PFIZER INC-2003156263US

PATIENT
  Sex: Female
  Weight: 77.3 kg

DRUGS (11)
  1. IRINOTECAN HCL [Suspect]
     Indication: COLON CANCER
     Dosage: DAILY DOSE:324MG
     Route: 042
     Dates: start: 20030409, end: 20030409
  2. PLACEBO [Suspect]
     Indication: COLON CANCER
     Route: 048
     Dates: start: 20030409, end: 20030411
  3. CALCIUM FOLINATE [Suspect]
     Indication: COLON CANCER
     Dosage: DAILY DOSE:720MG
     Route: 042
     Dates: start: 20030409, end: 20030409
  4. FLUOROURACIL [Suspect]
     Indication: COLORECTAL CANCER
     Dosage: DAILY DOSE:720MG
     Route: 042
     Dates: start: 20030409, end: 20030409
  5. FLUOROURACIL [Suspect]
     Dosage: DAILY DOSE:4320MG-FREQ:CYCLIC
     Route: 042
     Dates: start: 20030409, end: 20030411
  6. CUMADIN [Concomitant]
  7. PRAVACHOL [Concomitant]
  8. K-DUR 10 [Concomitant]
  9. DYAZIDE [Concomitant]
  10. DYAZIDE [Concomitant]
  11. ACETYLSALICYLIC ACID SRT [Concomitant]

REACTIONS (2)
  - SYNCOPE [None]
  - VOMITING [None]
